FAERS Safety Report 5054289-9 (Version None)
Quarter: 2006Q3

REPORT INFORMATION
  Report Type: 
  Country: None (occurrence: None)
  Receive Date: 20060713
  Receipt Date: 20060704
  Transmission Date: 20061208
  Serious: Yes (Other)
  Sender: FDA-Public Use
  Company Number: 2006082512

PATIENT
  Sex: Female

DRUGS (14)
  1. BENADRYL [Suspect]
     Indication: SINUS DISORDER
     Dosage: 2 KAPSEALS EVERY 4 HOURS, ORAL
     Route: 048
     Dates: start: 20051201
  2. ANTIDEPRESSANTS (ANTIDEPRESSANTS) [Suspect]
     Indication: DEPRESSION
     Dates: end: 20060704
  3. LORAZEPAM [Concomitant]
  4. OXYCODONE HCL [Concomitant]
  5. SERTRALINE HCL [Concomitant]
  6. FAMOTIDINE [Concomitant]
  7. LANSOPRAZOLE [Concomitant]
  8. OXCARBAZEPINE [Concomitant]
  9. IPRATROPIUM BROMIDE [Concomitant]
  10. TRAZODONE HCL [Concomitant]
  11. COMBIVENT [Concomitant]
  12. OXYCODONE HYDROCHLORIDE AND ACETAMINOPHEN [Concomitant]
  13. DULOXETINE HYDROCHLORIDE (DULOXETINE HYDROCHLORIDE) [Concomitant]
  14. OXYBUTYNIN CHLORIDE [Concomitant]

REACTIONS (2)
  - ANXIETY [None]
  - DRUG DEPENDENCE [None]
